FAERS Safety Report 14583011 (Version 7)
Quarter: 2020Q3

REPORT INFORMATION
  Report Type: Report from Study
  Country: IN (occurrence: IN)
  Receive Date: 20180228
  Receipt Date: 20181123
  Transmission Date: 20201104
  Serious: Yes (Death, Life-Threatening, Hospitalization, Other)
  Sender: FDA-Public Use
  Company Number: IN-ASTRAZENECA-2017SF29441

PATIENT
  Age: 21518 Day
  Sex: Female
  Weight: 39.5 kg

DRUGS (27)
  1. MEDI4736 [Suspect]
     Active Substance: DURVALUMAB
     Indication: NON-SMALL CELL LUNG CANCER
     Route: 042
     Dates: start: 20171101, end: 20171101
  2. MEDI4736 [Suspect]
     Active Substance: DURVALUMAB
     Indication: NON-SMALL CELL LUNG CANCER
     Route: 042
     Dates: start: 20171129, end: 20171129
  3. LOSARTAN. [Concomitant]
     Active Substance: LOSARTAN
     Indication: HYPERTENSION
     Dosage: 50 MG OD
     Route: 048
     Dates: end: 20180126
  4. ONDANSETRON [Concomitant]
     Active Substance: ONDANSETRON
     Indication: PROPHYLAXIS
     Dosage: 16.0MG ONCE/SINGLE ADMINISTRATION
     Route: 048
     Dates: start: 20171129, end: 20171129
  5. MEDI4736 [Suspect]
     Active Substance: DURVALUMAB
     Indication: NON-SMALL CELL LUNG CANCER
     Route: 042
     Dates: start: 20170906, end: 20170906
  6. MEDI4736 [Suspect]
     Active Substance: DURVALUMAB
     Indication: NON-SMALL CELL LUNG CANCER
     Route: 042
     Dates: start: 20170419, end: 20170419
  7. TREMELIMUMAB. [Suspect]
     Active Substance: TREMELIMUMAB
     Indication: NON-SMALL CELL LUNG CANCER
     Route: 042
     Dates: start: 20170419, end: 20170419
  8. CYPROHEPTADINE. [Concomitant]
     Active Substance: CYPROHEPTADINE
     Indication: CACHEXIA
     Route: 048
     Dates: start: 20170426, end: 20180126
  9. ENSURE PROTEIN POWDER [Concomitant]
     Indication: CACHEXIA
     Route: 048
     Dates: start: 20170419, end: 20180110
  10. ALPRAZOLAM. [Concomitant]
     Active Substance: ALPRAZOLAM
     Indication: INSOMNIA
     Dosage: 0.25 MG SOS
     Route: 048
     Dates: start: 20170809, end: 20180126
  11. ELTROXIN [Concomitant]
     Active Substance: LEVOTHYROXINE
     Indication: HYPOTHYROIDISM
     Route: 048
     Dates: start: 20171004, end: 20171219
  12. ASTHALIN [Concomitant]
     Active Substance: ALBUTEROL
     Indication: WHEEZING
     Route: 048
     Dates: start: 20171101, end: 20171216
  13. MEDI4736 [Suspect]
     Active Substance: DURVALUMAB
     Indication: NON-SMALL CELL LUNG CANCER
     Route: 042
     Dates: start: 20170712, end: 20170712
  14. TREMELIMUMAB. [Suspect]
     Active Substance: TREMELIMUMAB
     Indication: NON-SMALL CELL LUNG CANCER
     Route: 042
     Dates: start: 20170517, end: 20170517
  15. TREMELIMUMAB. [Suspect]
     Active Substance: TREMELIMUMAB
     Indication: NON-SMALL CELL LUNG CANCER
     Route: 042
     Dates: start: 20170614, end: 20170614
  16. METFORMIN [Concomitant]
     Active Substance: METFORMIN HYDROCHLORIDE
     Indication: DIABETES MELLITUS
     Route: 048
     Dates: end: 20180126
  17. PANTOCID [Concomitant]
     Indication: GASTRITIS PROPHYLAXIS
     Route: 048
     Dates: start: 20171129, end: 20171205
  18. ONDANSETRON [Concomitant]
     Active Substance: ONDANSETRON
     Indication: PROPHYLAXIS
     Dosage: 4.0MG ONCE/SINGLE ADMINISTRATION
     Route: 048
     Dates: start: 20171129, end: 20171205
  19. MEDI4736 [Suspect]
     Active Substance: DURVALUMAB
     Indication: NON-SMALL CELL LUNG CANCER
     Route: 042
     Dates: start: 20170809, end: 20170809
  20. MEDI4736 [Suspect]
     Active Substance: DURVALUMAB
     Indication: NON-SMALL CELL LUNG CANCER
     Route: 042
     Dates: start: 20170614, end: 20170614
  21. TREMELIMUMAB. [Suspect]
     Active Substance: TREMELIMUMAB
     Indication: NON-SMALL CELL LUNG CANCER
     Route: 042
     Dates: start: 20170712, end: 20170712
  22. MEDI4736 [Suspect]
     Active Substance: DURVALUMAB
     Indication: NON-SMALL CELL LUNG CANCER
     Route: 042
     Dates: start: 20171227, end: 20171227
  23. MEDI4736 [Suspect]
     Active Substance: DURVALUMAB
     Indication: NON-SMALL CELL LUNG CANCER
     Route: 042
     Dates: start: 20170517, end: 20170517
  24. ACUVIN [Concomitant]
     Indication: TOOTHACHE
     Dosage: 362.50 MG SOS
     Route: 048
     Dates: start: 20171122, end: 20171129
  25. MEDI4736 [Suspect]
     Active Substance: DURVALUMAB
     Indication: NON-SMALL CELL LUNG CANCER
     Route: 042
     Dates: start: 20171004, end: 20171004
  26. FERRIC AMMONIUM CITRATE, FOLIC ACID, CUPRIC SULPHATE, MANGANESE SUL... [Concomitant]
     Indication: PROPHYLAXIS
     Route: 048
     Dates: start: 20170517, end: 20180126
  27. PANTOCID [Concomitant]
     Indication: GASTRITIS PROPHYLAXIS
     Route: 048
     Dates: start: 20170712

REACTIONS (4)
  - Acute coronary syndrome [Not Recovered/Not Resolved]
  - Septic shock [Fatal]
  - Asthma [Fatal]
  - Multiple organ dysfunction syndrome [Fatal]

NARRATIVE: CASE EVENT DATE: 20171210
